FAERS Safety Report 13526665 (Version 1)
Quarter: 2017Q2

REPORT INFORMATION
  Report Type: Spontaneous
  Country: US (occurrence: US)
  Receive Date: 20170508
  Receipt Date: 20170508
  Transmission Date: 20170830
  Serious: No
  Sender: FDA-Public Use
  Company Number: None

PATIENT
  Age: 60 Year
  Sex: Female

DRUGS (1)
  1. CYCLOSPORINE CAP MOD 25MG [Suspect]
     Active Substance: CYCLOSPORINE
     Route: 048

REACTIONS (1)
  - Breast mass [None]

NARRATIVE: CASE EVENT DATE: 20170420
